FAERS Safety Report 6064451-4 (Version None)
Quarter: 2009Q1

REPORT INFORMATION
  Report Type: 
  Country: None (occurrence: None)
  Receive Date: 20090203
  Receipt Date: 20090203
  Transmission Date: 20090719
  Serious: Yes (Life-Threatening, Hospitalization, Other)
  Sender: FDA-Public Use
  Company Number: None

PATIENT
  Age: 37 Year
  Sex: Female
  Weight: 113.3993 kg

DRUGS (1)
  1. YAZ [Suspect]
     Indication: CONTRACEPTION
     Dosage: 1 PILL ONCE A DAY PO
     Route: 048
     Dates: start: 20070801, end: 20080922

REACTIONS (2)
  - CARDIO-RESPIRATORY ARREST [None]
  - PULMONARY EMBOLISM [None]
